FAERS Safety Report 23329335 (Version 1)
Quarter: 2023Q4

REPORT INFORMATION
  Report Type: Spontaneous
  Country: NL (occurrence: NL)
  Receive Date: 20231222
  Receipt Date: 20231222
  Transmission Date: 20240110
  Serious: Yes (Life-Threatening, Other)
  Sender: FDA-Public Use
  Company Number: None

PATIENT
  Age: 79 Year
  Sex: Male
  Weight: 73 kg

DRUGS (4)
  1. SITAGLIPTIN PHOSPHATE [Suspect]
     Active Substance: SITAGLIPTIN PHOSPHATE
     Indication: Diabetes mellitus
     Dosage: 50 MILLIGRAM, QD
     Dates: start: 20231001, end: 20231030
  2. NORMAL IMMUNOGLOBULIN [Concomitant]
     Dosage: INJECTION FLUID, 200 MG/ML (MILLIGRAM PER MILLILITER)
  3. RITUXIMAB [Concomitant]
     Active Substance: RITUXIMAB
     Dosage: 375 MG/M2
  4. DEXAMETHASONE [Concomitant]
     Active Substance: DEXAMETHASONE
     Dosage: CAPSULE, 40 MG (MILLIGRAM)

REACTIONS (2)
  - Thrombocytopenia [Recovering/Resolving]
  - Product substitution issue [Unknown]
